FAERS Safety Report 10596094 (Version 2)
Quarter: 2014Q4

REPORT INFORMATION
  Report Type: Spontaneous
  Country: US (occurrence: US)
  Receive Date: 20141120
  Receipt Date: 20141211
  Transmission Date: 20150529
  Serious: No
  Sender: FDA-Public Use
  Company Number: US-009507513-1411USA002746

PATIENT
  Weight: 78.5 kg

DRUGS (1)
  1. NEXPLANON [Suspect]
     Active Substance: ETONOGESTREL
     Dosage: 1 ROD/3 YEARS
     Route: 059
     Dates: start: 20141031

REACTIONS (4)
  - No adverse event [Unknown]
  - Device deployment issue [Unknown]
  - Product quality issue [Unknown]
  - Drug dose omission [Unknown]
